FAERS Safety Report 11173585 (Version 1)
Quarter: 2015Q2

REPORT INFORMATION
  Report Type: Spontaneous
  Country: ES (occurrence: ES)
  Receive Date: 20150609
  Receipt Date: 20150609
  Transmission Date: 20150821
  Serious: Yes (Hospitalization, Other)
  Sender: FDA-Public Use
  Company Number: ES-ASTRAZENECA-2015SE54807

PATIENT
  Age: 81 Year
  Sex: Male

DRUGS (11)
  1. ENALAPRIL [Concomitant]
     Active Substance: ENALAPRIL
  2. DONEPEZIL [Concomitant]
     Active Substance: DONEPEZIL
  3. QUETIAPINE [Concomitant]
     Active Substance: QUETIAPINE
  4. ADIRO [Interacting]
     Active Substance: ASPIRIN
     Indication: ATRIAL FIBRILLATION
     Dosage: 100 MG, DAILY, LATENCY: 2 MONTHS
     Route: 048
     Dates: start: 201407
  5. ALOPURINOL [Concomitant]
     Active Substance: ALLOPURINOL
  6. ENALAPRIL [Concomitant]
     Active Substance: ENALAPRIL
  7. BISOPROLOL [Concomitant]
     Active Substance: BISOPROLOL
  8. ANTIPLATELET [Concomitant]
     Active Substance: UNSPECIFIED INGREDIENT
  9. BRILIQUE [Suspect]
     Active Substance: TICAGRELOR
     Indication: ATRIAL FIBRILLATION
     Dosage: 90 MG,  TWO TIMES A DAY, LATENCY: 1 MONTHS
     Route: 048
     Dates: start: 201408
  10. UNIBENESTAN [Concomitant]
  11. ATORVASTATIN [Concomitant]
     Active Substance: ATORVASTATIN

REACTIONS (2)
  - Lower gastrointestinal haemorrhage [Recovered/Resolved]
  - Drug interaction [Unknown]

NARRATIVE: CASE EVENT DATE: 20140909
